FAERS Safety Report 9430190 (Version 2)
Quarter: 2013Q4

REPORT INFORMATION
  Report Type: Report from Study
  Country: JP (occurrence: JP)
  Receive Date: 20130730
  Receipt Date: 20131014
  Transmission Date: 20140711
  Serious: Yes (Life-Threatening)
  Sender: FDA-Public Use
  Company Number: JP-ROCHE-1254225

PATIENT
  Age: 75 Year
  Sex: Male

DRUGS (11)
  1. GRTPA [Suspect]
     Indication: EMBOLIC STROKE
     Dosage: 20.4 MIU
     Route: 042
     Dates: start: 20130628, end: 20130628
  2. DORMICUM (UNSPEC) [Suspect]
     Indication: PRODUCT USED FOR UNKNOWN INDICATION
     Route: 051
  3. RADICUT [Suspect]
     Indication: EMBOLIC STROKE
     Route: 041
     Dates: start: 20130628, end: 20130628
  4. RADICUT [Suspect]
     Route: 041
     Dates: start: 20130629, end: 20130701
  5. PERDIPINE [Suspect]
     Indication: HYPERTENSION
     Route: 065
  6. UNASYN IV [Suspect]
     Indication: CEREBRAL DECOMPRESSION
     Route: 051
     Dates: start: 20130629, end: 20130703
  7. OMEPRAL [Suspect]
     Indication: PRODUCT USED FOR UNKNOWN INDICATION
     Route: 051
     Dates: start: 20130629, end: 20130703
  8. GLYCEROL [Concomitant]
     Route: 041
     Dates: start: 20130629, end: 20130630
  9. GLYCEROL [Concomitant]
     Route: 041
     Dates: start: 20120701, end: 20120712
  10. MAGMITT [Concomitant]
     Route: 048
     Dates: start: 20130701, end: 20130814
  11. PURSENNID [Concomitant]
     Route: 048
     Dates: start: 20130701, end: 20130814

REACTIONS (3)
  - Brain oedema [Recovered/Resolved]
  - Interstitial lung disease [Recovering/Resolving]
  - Haemorrhage intracranial [Recovered/Resolved]
